FAERS Safety Report 5039042-4 (Version None)
Quarter: 2006Q2

REPORT INFORMATION
  Report Type: 
  Country: None (occurrence: None)
  Receive Date: 20060601
  Receipt Date: 20060112
  Transmission Date: 20061013
  Serious: No
  Sender: FDA-Public Use
  Company Number: 2006PV007000

PATIENT
  Age: 61 Year
  Sex: Female
  Weight: 85.2762 kg

DRUGS (8)
  1. BYETTA [Suspect]
     Indication: DIABETES MELLITUS NON-INSULIN-DEPENDENT
     Dosage: 5 MCG;BID;SC
     Route: 058
     Dates: start: 20051201
  2. METFORMIN [Concomitant]
  3. PRANDIN [Concomitant]
  4. LITHIUM CARBONATE [Concomitant]
  5. LEXAPRO [Concomitant]
  6. TRAZODONE HCL [Concomitant]
  7. METFORMIN [Concomitant]
  8. LEXAPROL [Concomitant]

REACTIONS (3)
  - DEPRESSED MOOD [None]
  - HYPERSOMNIA [None]
  - NAUSEA [None]
